FAERS Safety Report 12084022 (Version 1)
Quarter: 2016Q1

REPORT INFORMATION
  Report Type: Spontaneous
  Country: US (occurrence: US)
  Receive Date: 20160217
  Receipt Date: 20160217
  Transmission Date: 20160526
  Serious: Yes (Other)
  Sender: FDA-Public Use
  Company Number: US-BAYER-2016-026383

PATIENT
  Age: 7 Year
  Sex: Female
  Weight: 20.41 kg

DRUGS (1)
  1. MIRALAX [Suspect]
     Active Substance: POLYETHYLENE GLYCOL 3350
     Indication: CONSTIPATION
     Dosage: 1 DF, BID
     Route: 048
     Dates: start: 20160119, end: 20160206

REACTIONS (13)
  - Anger [Not Recovered/Not Resolved]
  - Fear [Not Recovered/Not Resolved]
  - Diarrhoea [None]
  - Decreased interest [None]
  - Nervous system disorder [None]
  - Adverse event [None]
  - Separation anxiety disorder [Not Recovered/Not Resolved]
  - Personality change [Not Recovered/Not Resolved]
  - Expired product administered [Recovered/Resolved]
  - Crying [Not Recovered/Not Resolved]
  - Product use issue [Recovered/Resolved]
  - Tic [Not Recovered/Not Resolved]
  - Off label use [Recovered/Resolved]

NARRATIVE: CASE EVENT DATE: 201601
